FAERS Safety Report 5441550-9 (Version None)
Quarter: 2007Q3

REPORT INFORMATION
  Report Type: 
  Country: None (occurrence: None)
  Receive Date: 20070829
  Receipt Date: 20070814
  Transmission Date: 20080115
  Serious: Yes (Death)
  Sender: FDA-Public Use
  Company Number: CLOF-10558

PATIENT
  Age: 26 Year
  Sex: Male

DRUGS (7)
  1. CLOFARABINE. MFR: GENZYME [Suspect]
     Indication: ACUTE LYMPHOCYTIC LEUKAEMIA
     Dosage: 52 MG/M2 QD X 5 IV
     Route: 042
     Dates: start: 20070501, end: 20070505
  2. AMBISOME [Concomitant]
  3. POSACONAZOLE [Concomitant]
  4. MEROPENEM [Concomitant]
  5. CLARITHROMYCIN [Concomitant]
  6. LANSOPRAZOLE [Concomitant]
  7. ACYCLOVIR [Concomitant]

REACTIONS (6)
  - ACUTE LYMPHOCYTIC LEUKAEMIA [None]
  - DISEASE PROGRESSION [None]
  - FUNGAL SEPSIS [None]
  - MUCORMYCOSIS [None]
  - NO THERAPEUTIC RESPONSE [None]
  - SPUTUM CULTURE POSITIVE [None]
